FAERS Safety Report 23365575 (Version 1)
Quarter: 2024Q1

REPORT INFORMATION
  Report Type: Spontaneous
  Country: US (occurrence: US)
  Receive Date: 20240104
  Receipt Date: 20240104
  Transmission Date: 20240409
  Serious: No
  Sender: FDA-Public Use
  Company Number: US-MELINTA THERAPEUTICS, LLC-US-MLNT-23-00584

PATIENT

DRUGS (1)
  1. KIMYRSA [Suspect]
     Active Substance: ORITAVANCIN DIPHOSPHATE
     Indication: Product used for unknown indication
     Dosage: NOT PROVIDED, SINGLE
     Route: 041
     Dates: start: 20230902, end: 20230902

REACTIONS (2)
  - Infusion related reaction [Unknown]
  - Product quality issue [Unknown]

NARRATIVE: CASE EVENT DATE: 20230902
